FAERS Safety Report 12228445 (Version 1)
Quarter: 2016Q2

REPORT INFORMATION
  Report Type: Report from Study
  Country: US (occurrence: US)
  Receive Date: 20160401
  Receipt Date: 20160401
  Transmission Date: 20160815
  Serious: Yes (Other)
  Sender: FDA-Public Use
  Company Number: US-GILEAD-2016-0206014

PATIENT
  Age: 50 Year
  Sex: Female

DRUGS (1)
  1. AMBRISENTAN [Suspect]
     Active Substance: AMBRISENTAN
     Indication: PRODUCT USED FOR UNKNOWN INDICATION
     Dosage: 5 MG, UNK
     Route: 065
     Dates: start: 20160204

REACTIONS (8)
  - Foot fracture [Unknown]
  - Poor quality sleep [Unknown]
  - Hypoaesthesia [Unknown]
  - Pain [Unknown]
  - Screaming [Unknown]
  - Fall [Unknown]
  - Gait disturbance [Unknown]
  - Feeling abnormal [Unknown]
